FAERS Safety Report 17755405 (Version 2)
Quarter: 2020Q2

REPORT INFORMATION
  Report Type: Report from Study
  Country: US (occurrence: US)
  Receive Date: 20200507
  Receipt Date: 20200512
  Transmission Date: 20200714
  Serious: Yes (Other)
  Sender: FDA-Public Use
  Company Number: US-IPSEN BIOPHARMACEUTICALS, INC.-2020-08296

PATIENT

DRUGS (2)
  1. BOTULINUM TOXIN TYPE A [Suspect]
     Active Substance: BOTULINUM TOXIN TYPE A
     Indication: OFF LABEL USE
  2. BOTULINUM TOXIN TYPE A [Suspect]
     Active Substance: BOTULINUM TOXIN TYPE A
     Indication: OESOPHAGEAL ACHALASIA
     Dosage: 100IU(5 INJECTIONS 20 U (1 ML) DELIVERED 1-2 CM ABOVE THE Z-LINE AROUND CIRCUMFERENCE OF ESOPHAGUS).
     Route: 065

REACTIONS (3)
  - Off label use [Unknown]
  - Diaphragm muscle weakness [Unknown]
  - Gastrooesophageal reflux disease [Unknown]
